FAERS Safety Report 16766494 (Version 2)
Quarter: 2019Q4

REPORT INFORMATION
  Report Type: Spontaneous
  Country: US (occurrence: US)
  Receive Date: 20190903
  Receipt Date: 20191003
  Transmission Date: 20200122
  Serious: Yes (Hospitalization, Other)
  Sender: FDA-Public Use
  Company Number: US-PFIZER INC-2019374640

PATIENT
  Sex: Female
  Weight: 104.31 kg

DRUGS (4)
  1. PREGABALIN. [Suspect]
     Active Substance: PREGABALIN
     Indication: NEUROPATHY PERIPHERAL
     Dosage: 150 MG, 3X/DAY
  2. LYRICA [Suspect]
     Active Substance: PREGABALIN
     Indication: NEUROPATHY PERIPHERAL
     Dosage: 75 MG, UNK
     Dates: start: 2014
  3. LYRICA [Suspect]
     Active Substance: PREGABALIN
     Dosage: 100 MG, UNK
     Dates: start: 2014
  4. LYRICA [Suspect]
     Active Substance: PREGABALIN
     Dosage: 150 MG, UNK
     Dates: start: 2014

REACTIONS (9)
  - Drug ineffective [Unknown]
  - Neuropathy peripheral [Unknown]
  - Dementia [Not Recovered/Not Resolved]
  - Emotional disorder [Unknown]
  - Hypoaesthesia [Unknown]
  - Nervousness [Unknown]
  - Feeling abnormal [Unknown]
  - Crying [Unknown]
  - Suicidal ideation [Unknown]
